FAERS Safety Report 20381108 (Version 2)
Quarter: 2022Q2

REPORT INFORMATION
  Report Type: Spontaneous
  Country: SE (occurrence: None)
  Receive Date: 20220127
  Receipt Date: 20220419
  Transmission Date: 20220721
  Serious: Yes (Life-Threatening, Hospitalization)
  Sender: FDA-Public Use
  Company Number: SE-Merck Healthcare KGaA-9294869

PATIENT
  Age: 27 Year
  Sex: Male

DRUGS (5)
  1. MAVENCLAD [Suspect]
     Active Substance: CLADRIBINE
     Indication: Multiple sclerosis
     Dosage: FIRST YEAR THERAPY
     Dates: start: 2020
  2. MAVENCLAD [Suspect]
     Active Substance: CLADRIBINE
     Dosage: SECOND YEAR FIRST COURSE THERAPY: 2 TABLETS ON DAY 1 TO 4 AND 1 TABLET ON DAY 5
     Dates: start: 20210726
  3. MAVENCLAD [Suspect]
     Active Substance: CLADRIBINE
     Dosage: SECOND YEAR SECOND COURSE THERAPY: 2 TABLETS ON DAY 1 TO 4 AND 1 TABLET ON DAY 5
     Dates: start: 20210826, end: 202108
  4. MELATONIN [Concomitant]
     Active Substance: MELATONIN
     Indication: Product used for unknown indication
     Dates: start: 202201
  5. OMEPRAZOLE [Concomitant]
     Active Substance: OMEPRAZOLE
     Indication: Product used for unknown indication
     Dates: start: 202203

REACTIONS (5)
  - Septic shock [Unknown]
  - Acute kidney injury [Recovering/Resolving]
  - COVID-19 [Recovered/Resolved]
  - Blood immunoglobulin G decreased [Unknown]
  - Lymphopenia [Unknown]

NARRATIVE: CASE EVENT DATE: 20211201
